FAERS Safety Report 12716198 (Version 3)
Quarter: 2016Q3

REPORT INFORMATION
  Report Type: Spontaneous
  Country: US (occurrence: US)
  Receive Date: 20160906
  Receipt Date: 20160926
  Transmission Date: 20161109
  Serious: Yes (Life-Threatening, Hospitalization, Other)
  Sender: FDA-Public Use
  Company Number: US-AUROBINDO-AUR-APL-2016-11231

PATIENT
  Age: 46 Year
  Sex: Male

DRUGS (1)
  1. LOPERAMIDE HCL [Suspect]
     Active Substance: LOPERAMIDE HYDROCHLORIDE
     Indication: IRRITABLE BOWEL SYNDROME
     Dosage: 50 DF, UNK

REACTIONS (15)
  - Electrocardiogram QT prolonged [Unknown]
  - Amnesia [Unknown]
  - Dizziness [Unknown]
  - Cardiac arrest [Recovered/Resolved]
  - Self-medication [Recovered/Resolved]
  - Ventricular fibrillation [Unknown]
  - Ventricular tachycardia [Unknown]
  - Overdose [Unknown]
  - Haemodynamic instability [Unknown]
  - Electrocardiogram T wave abnormal [Unknown]
  - Drug abuse [Recovered/Resolved]
  - Toxicity to various agents [Recovered/Resolved]
  - Loss of consciousness [Unknown]
  - Torsade de pointes [Unknown]
  - Ventricular arrhythmia [Recovered/Resolved]
